FAERS Safety Report 16278069 (Version 1)
Quarter: 2019Q2

REPORT INFORMATION
  Report Type: Spontaneous
  Country: GB (occurrence: GB)
  Receive Date: 20190506
  Receipt Date: 20190506
  Transmission Date: 20190711
  Serious: Yes (Hospitalization)
  Sender: FDA-Public Use
  Company Number: GB-ASTRAZENECA-2019SE65810

PATIENT
  Age: 42 Year
  Sex: Female

DRUGS (20)
  1. DAPAGLIFLOZIN. [Suspect]
     Active Substance: DAPAGLIFLOZIN
     Indication: TYPE 2 DIABETES MELLITUS
     Route: 048
     Dates: start: 20151001, end: 20190114
  2. OXYBUTYNIN. [Concomitant]
     Active Substance: OXYBUTYNIN CHLORIDE
     Dosage: 5 MG 1 TO BE TAKEN 2 OR 3 TIMES DAILY
  3. ZOPICLONE [Concomitant]
     Active Substance: ZOPICLONE
  4. MACROGOL [Concomitant]
     Active Substance: POLYETHYLENE GLYCOLS
     Dosage: ONE OR TWO SACHETS PER DAY ACCORDING TO RESPONSE
  5. ORAL CONTRACEPTIVE NOS [Concomitant]
     Active Substance: UNSPECIFIED INGREDIENT
     Indication: ORAL CONTRACEPTION
     Route: 048
     Dates: start: 20170301
  6. METFORMIN [Concomitant]
     Active Substance: METFORMIN HYDROCHLORIDE
     Dosage: 1 G TO BE TAKEN WITH EVENING MEAL
  7. CODEINE [Concomitant]
     Active Substance: CODEINE
     Dosage: 60 MG FOUR TIMES DAILY WHEN REQUIRED
  8. SITAGLIPTIN [Concomitant]
     Active Substance: SITAGLIPTIN
  9. HALOPERIDOL. [Concomitant]
     Active Substance: HALOPERIDOL
  10. LACTULOSE. [Concomitant]
     Active Substance: LACTULOSE
     Dosage: 3.1-3.7G/5ML
  11. SIMVASTATIN. [Concomitant]
     Active Substance: SIMVASTATIN
  12. SIMVASTATIN. [Concomitant]
     Active Substance: SIMVASTATIN
  13. CLENIL MODULITE [Concomitant]
     Active Substance: BECLOMETHASONE DIPROPIONATE
     Route: 055
  14. FLUOXETINE [Concomitant]
     Active Substance: FLUOXETINE HYDROCHLORIDE
  15. BACLOFEN. [Concomitant]
     Active Substance: BACLOFEN
  16. PARACETAMOL [Concomitant]
     Active Substance: ACETAMINOPHEN
  17. LAMOTRIGINE. [Concomitant]
     Active Substance: LAMOTRIGINE
  18. HYOSCINE BUTYLBROMIDE [Concomitant]
     Active Substance: BUTYLSCOPOLAMINE BROMIDE
  19. RANITIDINE. [Concomitant]
     Active Substance: RANITIDINE
  20. DIAZEPAM. [Concomitant]
     Active Substance: DIAZEPAM
     Dosage: 20 MG 1 IN THE MORNING, 1 AT LUNCH, 2 AT NIGHT

REACTIONS (1)
  - Necrotising fasciitis [Recovered/Resolved]

NARRATIVE: CASE EVENT DATE: 20181014
